FAERS Safety Report 21486149 (Version 3)
Quarter: 2023Q4

REPORT INFORMATION
  Report Type: Spontaneous
  Country: CA (occurrence: CA)
  Receive Date: 20221020
  Receipt Date: 20231128
  Transmission Date: 20240110
  Serious: Yes (Disabling, Other)
  Sender: FDA-Public Use
  Company Number: CA-PFIZER INC-2020300699

PATIENT
  Age: 62 Year
  Sex: Male
  Weight: 55 kg

DRUGS (7)
  1. LORBRENA [Interacting]
     Active Substance: LORLATINIB
     Indication: Non-small cell lung cancer
     Dosage: 100 MG, DAILY
     Route: 048
     Dates: start: 20200724
  2. LORBRENA [Interacting]
     Active Substance: LORLATINIB
     Dosage: 50 MG, DAILY
     Route: 048
  3. LORBRENA [Interacting]
     Active Substance: LORLATINIB
     Dosage: 100 MG
     Route: 048
  4. LORBRENA [Interacting]
     Active Substance: LORLATINIB
     Dosage: 50 MG, ALTERNATE DAY (25 MG TABLET, TAKE 2 TABLETS (50 MG) ONCE DAILY)
     Route: 048
  5. LORBRENA [Interacting]
     Active Substance: LORLATINIB
     Dosage: 50 MG, DAILY, TAKE 2 TABLETS ONCE DAILY
  6. LEMBOREXANT [Interacting]
     Active Substance: LEMBOREXANT
     Dosage: UNK
  7. MVASI [Concomitant]
     Active Substance: BEVACIZUMAB-AWWB
     Dosage: UNK

REACTIONS (23)
  - Neuropathy peripheral [Not Recovered/Not Resolved]
  - Myalgia [Not Recovered/Not Resolved]
  - Road traffic accident [Unknown]
  - Off label use [Unknown]
  - Drug interaction [Unknown]
  - Visual impairment [Unknown]
  - Pain [Unknown]
  - Discomfort [Unknown]
  - Gait disturbance [Recovering/Resolving]
  - Loss of personal independence in daily activities [Recovering/Resolving]
  - Anxiety [Recovering/Resolving]
  - Depression [Recovering/Resolving]
  - Arthritis [Unknown]
  - Vision blurred [Unknown]
  - Paraesthesia [Unknown]
  - Headache [Unknown]
  - Chest pain [Unknown]
  - Pain in extremity [Unknown]
  - General physical health deterioration [Unknown]
  - Arthralgia [Unknown]
  - Asthenia [Unknown]
  - Malaise [Unknown]
  - Off label use [Unknown]

NARRATIVE: CASE EVENT DATE: 20210301
